FAERS Safety Report 4279411-3 (Version None)
Quarter: 2004Q1

REPORT INFORMATION
  Report Type: 
  Country: None (occurrence: None)
  Receive Date: 20040127
  Receipt Date: 20030909
  Transmission Date: 20041129
  Serious: No
  Sender: FDA-Public Use
  Company Number: US-BRISTOL-MYERS SQUIBB COMPANY-12377974

PATIENT
  Sex: Female

DRUGS (6)
  1. DOVONEX [Suspect]
     Indication: PSORIASIS
     Route: 061
  2. AMITRIPTYLINE HCL [Concomitant]
  3. LIPITOR [Concomitant]
  4. INDERAL [Concomitant]
  5. DEPAKOTE [Concomitant]
  6. FOSAMAX [Concomitant]

REACTIONS (1)
  - PSORIASIS [None]
